FAERS Safety Report 20676907 (Version 1)
Quarter: 2022Q2

REPORT INFORMATION
  Report Type: Spontaneous
  Country: None (occurrence: IT)
  Receive Date: 20220406
  Receipt Date: 20220406
  Transmission Date: 20220721
  Serious: Yes (Hospitalization, Other)
  Sender: FDA-Public Use
  Company Number: IT-Oxford Pharmaceuticals, LLC-2127437

PATIENT
  Age: 55 Year
  Sex: Female

DRUGS (1)
  1. BACLOFEN [Suspect]
     Active Substance: BACLOFEN
     Indication: Muscle spasticity
     Route: 037

REACTIONS (5)
  - Metabolic encephalopathy [Unknown]
  - Anxiety [Unknown]
  - Motor dysfunction [Unknown]
  - Mental status changes [Unknown]
  - Withdrawal syndrome [Unknown]
